FAERS Safety Report 19265579 (Version 1)
Quarter: 2021Q2

REPORT INFORMATION
  Report Type: Spontaneous
  Country: FR (occurrence: FR)
  Receive Date: 20210517
  Receipt Date: 20210517
  Transmission Date: 20210717
  Serious: Yes (Hospitalization)
  Sender: FDA-Public Use
  Company Number: FR-ACCORD-225276

PATIENT
  Age: 63 Year
  Sex: Male

DRUGS (4)
  1. TEGRETOL [Concomitant]
     Active Substance: CARBAMAZEPINE
  2. DEPAKINE [Concomitant]
     Active Substance: VALPROATE SODIUM
  3. GARDENAL [Concomitant]
     Active Substance: PHENOBARBITAL
  4. TADALAFIL. [Suspect]
     Active Substance: TADALAFIL
     Indication: ERECTILE DYSFUNCTION
     Dosage: 1 TAKEN
     Route: 048
     Dates: start: 20210115

REACTIONS (1)
  - Splenic haemorrhage [Recovered/Resolved]

NARRATIVE: CASE EVENT DATE: 20210115
